FAERS Safety Report 7025419-4 (Version None)
Quarter: 2010Q4

REPORT INFORMATION
  Report Type: 
  Country: None (occurrence: None)
  Receive Date: 20101001
  Receipt Date: 20100924
  Transmission Date: 20110411
  Serious: Yes (Other)
  Sender: FDA-Public Use
  Company Number: CHPA2010US15188

PATIENT
  Age: 46 Year
  Sex: Male

DRUGS (4)
  1. EX-LAX MAX STR LAX PILLS SENNA (NCH) [Suspect]
     Indication: CONSTIPATION
     Dosage: 2 DF, ONCE/SINGLE
     Route: 048
     Dates: start: 20100915, end: 20100915
  2. EX-LAX MAX STR LAX PILLS SENNA (NCH) [Suspect]
     Dosage: 2 DF, PRN
     Route: 048
     Dates: start: 20090101, end: 20091201
  3. EX-LAX MAX STR LAX PILLS SENNA (NCH) [Suspect]
     Route: 048
  4. SIMVASTATIN [Concomitant]
     Indication: BLOOD CHOLESTEROL INCREASED

REACTIONS (5)
  - ANORECTAL DISCOMFORT [None]
  - ANORECTAL OPERATION [None]
  - BLOOD CHOLESTEROL INCREASED [None]
  - GOUT [None]
  - PAIN [None]
